FAERS Safety Report 22148658 (Version 1)
Quarter: 2023Q1

REPORT INFORMATION
  Report Type: Spontaneous
  Country: IT (occurrence: None)
  Receive Date: 20230328
  Receipt Date: 20230328
  Transmission Date: 20230417
  Serious: Yes (Hospitalization)
  Sender: FDA-Public Use
  Company Number: 2023A065457

PATIENT
  Age: 60 Year
  Sex: Female

DRUGS (3)
  1. QUETIAPINE [Suspect]
     Active Substance: QUETIAPINE
     Route: 048
     Dates: start: 20230126, end: 20230126
  2. XANAX [Suspect]
     Active Substance: ALPRAZOLAM
     Dates: start: 20230126, end: 20230126
  3. EN [Suspect]
     Active Substance: DELORAZEPAM
     Dates: start: 20230126, end: 20230126

REACTIONS (2)
  - Sopor [Recovering/Resolving]
  - Drug abuse [Recovering/Resolving]

NARRATIVE: CASE EVENT DATE: 20230126
